FAERS Safety Report 5977836-9 (Version None)
Quarter: 2008Q4

REPORT INFORMATION
  Report Type: 
  Country: None (occurrence: None)
  Receive Date: 20081203
  Receipt Date: 20071019
  Transmission Date: 20090506
  Serious: No
  Sender: FDA-Public Use
  Company Number: US-BRISTOL-MYERS SQUIBB COMPANY-13949656

PATIENT
  Age: 9 Year
  Sex: Female

DRUGS (4)
  1. VIDEX [Suspect]
  2. NORVIR [Suspect]
  3. RETROVIR [Concomitant]
  4. LEXIVA [Concomitant]

REACTIONS (2)
  - BLADDER SPASM [None]
  - URINARY TRACT DISORDER [None]
